FAERS Safety Report 12924026 (Version 1)
Quarter: 2016Q4

REPORT INFORMATION
  Report Type: Spontaneous
  Country: US (occurrence: US)
  Receive Date: 20161109
  Receipt Date: 20161109
  Transmission Date: 20170207
  Serious: No
  Sender: FDA-Public Use
  Company Number: None

PATIENT
  Sex: Female
  Weight: 62.14 kg

DRUGS (1)
  1. LEVOTHYROXINE 50MCG MYLAN PHARM [Suspect]
     Active Substance: LEVOTHYROXINE
     Indication: HYPOTHYROIDISM
     Route: 048
     Dates: start: 2014, end: 2016

REACTIONS (3)
  - Fatigue [None]
  - Thirst [None]
  - Disturbance in attention [None]
